FAERS Safety Report 17144844 (Version 1)
Quarter: 2019Q4

REPORT INFORMATION
  Report Type: Spontaneous
  Country: GB (occurrence: GB)
  Receive Date: 20191212
  Receipt Date: 20191212
  Transmission Date: 20200122
  Serious: Yes (Other)
  Sender: FDA-Public Use
  Company Number: GB-MYLANLABS-2019M1121154

PATIENT
  Sex: Female

DRUGS (1)
  1. ELLESTE SOLO [Suspect]
     Active Substance: ESTRADIOL
     Indication: HORMONE REPLACEMENT THERAPY
     Dosage: 2 MILLIGRAM, BID

REACTIONS (11)
  - Insomnia [Recovering/Resolving]
  - Anxiety [Recovering/Resolving]
  - Menopausal symptoms [Recovering/Resolving]
  - Dry skin [Recovering/Resolving]
  - Pollakiuria [Recovering/Resolving]
  - Haemorrhage [Recovering/Resolving]
  - Disturbance in attention [Recovering/Resolving]
  - Scab [Recovering/Resolving]
  - Frequent bowel movements [Recovering/Resolving]
  - Rash macular [Recovering/Resolving]
  - Burning sensation [Recovering/Resolving]
